FAERS Safety Report 5076015-X (Version None)
Quarter: 2006Q3

REPORT INFORMATION
  Report Type: 
  Country: None (occurrence: None)
  Receive Date: 20060808
  Receipt Date: 20060808
  Transmission Date: 20061208
  Serious: Yes (Other)
  Sender: FDA-Public Use
  Company Number: None

PATIENT
  Age: 72 Year
  Sex: Male
  Weight: 70.3075 kg

DRUGS (4)
  1. QUINAPRIL [Suspect]
     Indication: CORONARY ARTERY DISEASE
     Dosage: 10 MG PO Q DAY
     Route: 048
     Dates: start: 20050714, end: 20050722
  2. QUINAPRIL [Suspect]
     Indication: HYPERTENSION
     Dosage: 10 MG PO Q DAY
     Route: 048
     Dates: start: 20050714, end: 20050722
  3. LOPRESSOR [Concomitant]
  4. ZOCOR [Concomitant]

REACTIONS (3)
  - DIZZINESS [None]
  - MALAISE [None]
  - VISUAL DISTURBANCE [None]
